FAERS Safety Report 10601621 (Version 1)
Quarter: 2014Q4

REPORT INFORMATION
  Report Type: Spontaneous
  Country: CN (occurrence: None)
  Receive Date: 20141120
  Receipt Date: 20141120
  Transmission Date: 20150529
  Serious: Yes (Death, Other)
  Sender: FDA-Public Use
  Company Number: VAL_03600_2014

PATIENT
  Age: 12 Year
  Sex: Female

DRUGS (1)
  1. METOPROLOL (METOPROLOL) [Suspect]
     Active Substance: METOPROLOL
     Indication: LONG QT SYNDROME

REACTIONS (4)
  - Heart rate decreased [None]
  - Sudden infant death syndrome [None]
  - Electrocardiogram QT prolonged [None]
  - Electrocardiogram T wave abnormal [None]
